FAERS Safety Report 4674198-4 (Version None)
Quarter: 2005Q2

REPORT INFORMATION
  Report Type: 
  Country: None (occurrence: None)
  Receive Date: 20050524
  Receipt Date: 20050505
  Transmission Date: 20051028
  Serious: Yes (Hospitalization, Other)
  Sender: FDA-Public Use
  Company Number: USA050597363

PATIENT
  Sex: Female

DRUGS (5)
  1. CYMBALTA [Suspect]
     Indication: DEPRESSION
     Dosage: 60 MG DAY
     Dates: start: 20050401, end: 20050401
  2. ZYPREXA [Concomitant]
  3. WELLBUTRIN [Concomitant]
  4. ... [Concomitant]
  5. ... [Concomitant]

REACTIONS (2)
  - CONVULSION [None]
  - HEPATIC ENZYME INCREASED [None]
